FAERS Safety Report 22004901 (Version 5)
Quarter: 2024Q1

REPORT INFORMATION
  Report Type: Spontaneous
  Country: US (occurrence: US)
  Receive Date: 20230217
  Receipt Date: 20240312
  Transmission Date: 20240409
  Serious: No
  Sender: FDA-Public Use
  Company Number: US-PFIZER INC-PV202300030575

PATIENT
  Age: 83 Year
  Sex: Male
  Weight: 72.57 kg

DRUGS (2)
  1. BOSULIF [Suspect]
     Active Substance: BOSUTINIB MONOHYDRATE
     Indication: Chronic myeloid leukaemia
     Dosage: 200 MG, DAILY
     Route: 048
  2. BOSULIF [Suspect]
     Active Substance: BOSUTINIB MONOHYDRATE
     Dosage: 200 MG TAKES TWO A DAY IN THE MORNING WITH PLENTY OF LIQUID AND FOOD/ TAKE WHOLE WITH WATER AND FOOD
     Route: 048

REACTIONS (2)
  - Off label use [Unknown]
  - Hypoacusis [Not Recovered/Not Resolved]
